FAERS Safety Report 5089588-8 (Version None)
Quarter: 2006Q3

REPORT INFORMATION
  Report Type: 
  Country: None (occurrence: None)
  Receive Date: 20060822
  Receipt Date: 20060728
  Transmission Date: 20061208
  Serious: Yes (Other)
  Sender: FDA-Public Use
  Company Number: WW-ISSUE - 6

PATIENT
  Sex: Male

DRUGS (1)
  1. LISINOPRIL [Suspect]

REACTIONS (1)
  - VASCULAR RUPTURE [None]
